FAERS Safety Report 4430996-3 (Version None)
Quarter: 2004Q3

REPORT INFORMATION
  Report Type: 
  Country: None (occurrence: None)
  Receive Date: 20040824
  Receipt Date: 20040812
  Transmission Date: 20050211
  Serious: Yes (Death, Hospitalization, Other)
  Sender: FDA-Public Use
  Company Number: US-JNJFOC-20040705598

PATIENT
  Sex: Male
  Weight: 8.9 kg

DRUGS (51)
  1. INFLIXIMAB [Suspect]
     Dosage: OFF-STUDY
     Route: 042
  2. INFLIXIMAB [Suspect]
     Dosage: OFF-STUDY
     Route: 042
  3. INFLIXIMAB [Suspect]
     Dosage: STUDY DRUG
     Route: 042
  4. TYLENOL [Concomitant]
     Route: 049
  5. AMLODIPINE [Concomitant]
     Route: 049
  6. AMPHO B [Concomitant]
     Route: 042
  7. AQUAPHOR [Concomitant]
     Route: 061
  8. AQUAPHOR [Concomitant]
     Route: 061
  9. AQUAPHOR [Concomitant]
     Route: 061
  10. AQUAPHOR [Concomitant]
     Route: 061
  11. BACITRACIN [Concomitant]
     Route: 047
  12. BIOTENE MOUTHWASH [Concomitant]
  13. BLEPHAMIDE [Concomitant]
     Route: 047
  14. BLEPHAMIDE [Concomitant]
     Route: 047
  15. BLEPHAMIDE [Concomitant]
     Route: 047
  16. BLEPHAMIDE [Concomitant]
     Route: 047
  17. BLEPHAMIDE [Concomitant]
     Route: 047
  18. BLEPHAMIDE [Concomitant]
     Route: 047
  19. BLEPHAMIDE [Concomitant]
     Route: 047
  20. BLEPHAMIDE [Concomitant]
     Route: 047
  21. FUROSEMIDE [Concomitant]
     Route: 042
  22. FUROSEMIDE [Concomitant]
     Route: 042
  23. FUROSEMIDE [Concomitant]
     Route: 042
  24. METHYLPRED [Concomitant]
     Route: 042
  25. METRONIDAZOLE [Concomitant]
     Route: 042
  26. NIFEDIPINE [Concomitant]
     Route: 049
  27. SULFAMETHOXAZOLE [Concomitant]
     Route: 049
  28. URSODIOL [Concomitant]
     Route: 049
  29. VANCOMYCIN [Concomitant]
     Route: 042
  30. CIPROFLOXACIN 0.3% [Concomitant]
     Route: 049
  31. CYCLOSPORINE [Concomitant]
     Route: 042
  32. DEXTROSE 5% [Concomitant]
     Route: 042
  33. DIPHENHYDRAMINE HCL [Concomitant]
     Route: 042
  34. DIPHENHYDRAMINE HCL [Concomitant]
     Route: 049
  35. FAMOTIDINE [Concomitant]
     Route: 042
  36. FILGRASTIM [Concomitant]
  37. MEPERIDINE HCL [Concomitant]
     Route: 042
  38. ONDANSETRON [Concomitant]
     Route: 042
  39. CEFTAZIDIME [Concomitant]
     Route: 042
  40. GANCICLOVIR [Concomitant]
     Route: 042
  41. ONTAK [Concomitant]
  42. ONTAK [Concomitant]
  43. ONTAK [Concomitant]
  44. ETANERCEPT [Concomitant]
  45. ETANERCEPT [Concomitant]
  46. AMICAR [Concomitant]
  47. ZOFRAN [Concomitant]
  48. REGLAN [Concomitant]
  49. FK-506 [Concomitant]
  50. NEUPOGEN [Concomitant]
  51. FENTANYL [Concomitant]
     Route: 041

REACTIONS (33)
  - ABDOMINAL DISTENSION [None]
  - ABDOMINAL PAIN [None]
  - ACUTE RESPIRATORY FAILURE [None]
  - ASCITES [None]
  - BACTERIA STOOL IDENTIFIED [None]
  - BRADYCARDIA [None]
  - CHOLELITHIASIS [None]
  - DIARRHOEA HAEMORRHAGIC [None]
  - FACE OEDEMA [None]
  - GALLBLADDER DISORDER [None]
  - GALLBLADDER OEDEMA [None]
  - GRAFT VERSUS HOST DISEASE [None]
  - HAEMODIALYSIS [None]
  - HEPATOMEGALY [None]
  - HYPOTENSION [None]
  - LUNG DISORDER [None]
  - LUNG INFILTRATION [None]
  - MENTAL STATUS CHANGES [None]
  - MUCOUS MEMBRANE DISORDER [None]
  - MULTI-ORGAN FAILURE [None]
  - PERIOSTITIS [None]
  - PLEURAL EFFUSION [None]
  - PYREXIA [None]
  - RENAL DISORDER [None]
  - RENAL FAILURE [None]
  - RESPIRATORY ACIDOSIS [None]
  - RESPIRATORY DISTRESS [None]
  - RHINORRHOEA [None]
  - STOMATITIS [None]
  - TACHYCARDIA [None]
  - TACHYPNOEA [None]
  - THROMBOCYTOPENIA [None]
  - UPPER RESPIRATORY TRACT CONGESTION [None]
